FAERS Safety Report 4568743-7 (Version None)
Quarter: 2005Q1

REPORT INFORMATION
  Report Type: 
  Country: None (occurrence: None)
  Receive Date: 20050202
  Receipt Date: 20041207
  Transmission Date: 20050727
  Serious: Yes (Death, Hospitalization)
  Sender: FDA-Public Use
  Company Number: US-MERCK-0412USA00864

PATIENT
  Age: 76 Year
  Sex: Female
  Weight: 84 kg

DRUGS (6)
  1. VIOXX [Suspect]
     Indication: RHEUMATOID ARTHRITIS
     Route: 048
     Dates: start: 20030101
  2. VIOXX [Suspect]
     Indication: OSTEOARTHRITIS
     Route: 048
     Dates: start: 20030101
  3. HYDROCHLOROTHIAZIDE [Concomitant]
     Route: 048
  4. CAPOTEN [Concomitant]
     Route: 048
  5. PLAQUENIL [Concomitant]
     Route: 048
  6. PARAFON FORTE [Concomitant]
     Route: 065

REACTIONS (2)
  - HYPERTENSION [None]
  - MYELODYSPLASTIC SYNDROME [None]
